FAERS Safety Report 4715230-9 (Version None)
Quarter: 2005Q3

REPORT INFORMATION
  Report Type: 
  Country: None (occurrence: None)
  Receive Date: 20050715
  Receipt Date: 20050705
  Transmission Date: 20060218
  Serious: Yes (Other)
  Sender: FDA-Public Use
  Company Number: AU-ROCHE-409696

PATIENT
  Age: 47 Year
  Sex: Female
  Weight: 68 kg

DRUGS (1)
  1. KYTRIL [Suspect]
     Indication: DRUG USE FOR UNKNOWN INDICATION
     Route: 042
     Dates: start: 20050630, end: 20050630

REACTIONS (6)
  - ERYTHEMA [None]
  - INFUSION RELATED REACTION [None]
  - INFUSION SITE PAIN [None]
  - INJECTION SITE IRRITATION [None]
  - PRURITUS [None]
  - URTICARIA [None]
